FAERS Safety Report 10233102 (Version 1)
Quarter: 2014Q2

REPORT INFORMATION
  Report Type: Spontaneous
  Country: US (occurrence: US)
  Receive Date: 20140612
  Receipt Date: 20140612
  Transmission Date: 20141212
  Serious: Yes (Other)
  Sender: FDA-Public Use
  Company Number: US-B.I. PHARMACEUTICALS,INC./RIDGEFIELD-2014-BI-26366YA

PATIENT
  Age: 70 Year
  Sex: Male

DRUGS (6)
  1. FLOMAX [Suspect]
     Indication: PRODUCT USED FOR UNKNOWN INDICATION
     Route: 065
  2. LYRICA [Suspect]
     Indication: NEUROPATHY PERIPHERAL
     Dosage: 100 MG
     Route: 065
     Dates: start: 2009
  3. LYRICA [Suspect]
     Dosage: 150 MG
     Route: 065
     Dates: start: 2010
  4. LYRICA [Suspect]
     Dosage: 200 MG
     Route: 065
     Dates: start: 20101020
  5. GABAPENTIN [Suspect]
     Indication: PRODUCT USED FOR UNKNOWN INDICATION
     Dosage: 300 MG
     Route: 065
  6. GABAPENTIN [Suspect]
     Dosage: 4 ANZ
     Route: 065

REACTIONS (5)
  - Road traffic accident [Unknown]
  - Sudden onset of sleep [Unknown]
  - Paraesthesia [Not Recovered/Not Resolved]
  - Pain in extremity [Not Recovered/Not Resolved]
  - Drug level increased [Unknown]
